FAERS Safety Report 25229153 (Version 2)
Quarter: 2025Q2

REPORT INFORMATION
  Report Type: Spontaneous
  Country: DE (occurrence: DE)
  Receive Date: 20250423
  Receipt Date: 20250501
  Transmission Date: 20250716
  Serious: Yes (Hospitalization, Other)
  Sender: STRIDES
  Company Number: None

PATIENT
  Age: 10 Year
  Sex: Female

DRUGS (3)
  1. IBUPROFEN [Suspect]
     Active Substance: IBUPROFEN
     Indication: Migraine
     Route: 065
  2. ACETAMINOPHEN\ASPIRIN [Suspect]
     Active Substance: ACETAMINOPHEN\ASPIRIN
     Indication: Migraine
     Route: 065
  3. ACETAMINOPHEN\ASPIRIN [Suspect]
     Active Substance: ACETAMINOPHEN\ASPIRIN
     Indication: Headache

REACTIONS (6)
  - NSAID exacerbated respiratory disease [Recovered/Resolved]
  - Drug hypersensitivity [Recovered/Resolved]
  - Chronic rhinosinusitis with nasal polyps [Recovered/Resolved]
  - Asthma [Recovered/Resolved]
  - Obstructive airways disorder [Recovered/Resolved]
  - Dyspnoea [Unknown]

NARRATIVE: CASE EVENT DATE: 20200901
